FAERS Safety Report 5411391-7 (Version None)
Quarter: 2007Q3

REPORT INFORMATION
  Report Type: 
  Country: None (occurrence: None)
  Receive Date: 20070810
  Receipt Date: 20070730
  Transmission Date: 20080115
  Serious: Yes (Other)
  Sender: FDA-Public Use
  Company Number: JP-ASTRAZENECA-2007AP04569

PATIENT
  Age: 71 Year
  Sex: Male

DRUGS (3)
  1. CRESTOR [Suspect]
     Indication: HYPERCHOLESTEROLAEMIA
     Route: 048
     Dates: start: 20070525, end: 20070705
  2. TENORMIN [Concomitant]
     Route: 048
     Dates: start: 19990101
  3. CALSLOT [Concomitant]
     Route: 048
     Dates: start: 19990101

REACTIONS (1)
  - ATRIAL FIBRILLATION [None]
